FAERS Safety Report 24799927 (Version 4)
Quarter: 2025Q1

REPORT INFORMATION
  Report Type: Spontaneous
  Country: US (occurrence: US)
  Receive Date: 20250102
  Receipt Date: 20250224
  Transmission Date: 20250408
  Serious: Yes (Hospitalization)
  Sender: PFIZER
  Company Number: US-PFIZER INC-PV202400169291

PATIENT
  Age: 5 Year
  Sex: Male
  Weight: 18.1 kg

DRUGS (12)
  1. GENOTROPIN [Suspect]
     Active Substance: SOMATROPIN
     Indication: Hypopituitarism
     Dosage: 0.5 MG/DAY 7 DAYS/WEEK
  2. GENOTROPIN [Suspect]
     Active Substance: SOMATROPIN
     Indication: Micropenis
  3. GENOTROPIN [Suspect]
     Active Substance: SOMATROPIN
     Indication: Adrenal insufficiency
  4. GENOTROPIN [Suspect]
     Active Substance: SOMATROPIN
     Indication: Growth hormone deficiency
  5. GENOTROPIN [Suspect]
     Active Substance: SOMATROPIN
     Indication: CHARGE syndrome
  6. SOMATROPIN [Suspect]
     Active Substance: SOMATROPIN
     Indication: Hypothyroidism
     Dosage: 0.4 MG SUBCUTANEOUS INJECTION 0.4 MGS, SUBCUTANEOUS, DAILY, PLUS SUPPLIES 0.17 MG/ KG/ WEEK
     Route: 058
  7. SOMATROPIN [Suspect]
     Active Substance: SOMATROPIN
     Indication: Growth hormone deficiency
     Dosage: 0.24 MG/KG/WEEK
  8. SOMATROPIN [Suspect]
     Active Substance: SOMATROPIN
     Indication: Adrenal insufficiency
  9. SOMATROPIN [Suspect]
     Active Substance: SOMATROPIN
     Indication: Micropenis
  10. SOMATROPIN [Suspect]
     Active Substance: SOMATROPIN
     Indication: CHARGE syndrome
  11. SOMATROPIN [Suspect]
     Active Substance: SOMATROPIN
     Indication: Hypopituitarism
  12. HYDROCORTISONE [Suspect]
     Active Substance: HYDROCORTISONE

REACTIONS (2)
  - Constipation [Unknown]
  - Vomiting [Unknown]
